FAERS Safety Report 9509451 (Version 1)
Quarter: 2013Q3

REPORT INFORMATION
  Report Type: Spontaneous
  Country: US (occurrence: US)
  Receive Date: 20130909
  Receipt Date: 20130909
  Transmission Date: 20140515
  Serious: No
  Sender: FDA-Public Use
  Company Number: US-BRISTOL-MYERS SQUIBB COMPANY-17270737

PATIENT
  Age: 40 Year
  Sex: Female
  Weight: 72.56 kg

DRUGS (1)
  1. ABILIFY [Suspect]
     Indication: SCHIZOPHRENIA
     Dosage: TAPERED FROM 10MG TO 7MG TO 5MG TO 3MG TO NONE AT 3 WEEK INTERVALS. RESTARTED 30MG IN FEB12
     Dates: start: 2005

REACTIONS (2)
  - Pregnancy [Recovered/Resolved]
  - Normal newborn [Unknown]
